FAERS Safety Report 23230535 (Version 1)
Quarter: 2023Q4

REPORT INFORMATION
  Report Type: Spontaneous
  Country: ES (occurrence: None)
  Receive Date: 20231127
  Receipt Date: 20231127
  Transmission Date: 20240110
  Serious: Yes (Life-Threatening, Hospitalization, Other)
  Sender: FDA-Public Use
  Company Number: 2023A267816

PATIENT

DRUGS (1)
  1. OSIMERTINIB [Suspect]
     Active Substance: OSIMERTINIB

REACTIONS (5)
  - Serositis [Unknown]
  - Cardiac tamponade [Unknown]
  - Pleural effusion [Unknown]
  - Ascites [Unknown]
  - Product quality issue [Unknown]

NARRATIVE: CASE EVENT DATE: 20231101
